FAERS Safety Report 11559851 (Version 1)
Quarter: 2015Q3

REPORT INFORMATION
  Report Type: Spontaneous
  Country: US (occurrence: None)
  Receive Date: 20150925
  Receipt Date: 20150925
  Transmission Date: 20151125
  Serious: Yes (Hospitalization)
  Sender: FDA-Public Use
  Company Number: None

PATIENT
  Age: 71 Year
  Sex: Male

DRUGS (1)
  1. LIMBREL [Suspect]
     Active Substance: FLAVOCOXID
     Indication: OSTEOARTHRITIS
     Route: 048

REACTIONS (7)
  - Dyspnoea [None]
  - Chest pain [None]
  - Pyrexia [None]
  - Cough [None]
  - Chills [None]
  - Hypersensitivity [None]
  - Pneumonitis [None]

NARRATIVE: CASE EVENT DATE: 20150910
